FAERS Safety Report 7304731-5 (Version None)
Quarter: 2011Q1

REPORT INFORMATION
  Report Type: 
  Country: None (occurrence: None)
  Receive Date: 20110222
  Receipt Date: 20110208
  Transmission Date: 20110831
  Serious: Yes (Other)
  Sender: FDA-Public Use
  Company Number: US-CELGENEUS-163-21880-11010986

PATIENT
  Sex: Female
  Weight: 48.578 kg

DRUGS (21)
  1. INSULIN GLARGINE [Concomitant]
     Dosage: 100 UNIT/ML
     Route: 058
  2. ENALAPRIL [Concomitant]
     Route: 048
  3. ROSUVASTATIN [Concomitant]
     Route: 048
  4. MOMETASONE FUROATE [Concomitant]
     Route: 045
  5. CALCIUM [Concomitant]
     Route: 065
  6. ALBUTEROL [Concomitant]
     Route: 055
  7. METFORMIN [Concomitant]
     Route: 048
  8. EXENATIDE [Concomitant]
     Dosage: 10MCG/0.04ML
     Route: 058
  9. PIOGLITAZONE [Concomitant]
     Route: 048
  10. CETIRIZINE HCL [Concomitant]
     Route: 048
  11. REVLIMID [Suspect]
     Route: 048
     Dates: start: 20100401
  12. SOLIFENACIN [Concomitant]
     Route: 048
  13. PATANOL [Concomitant]
     Route: 047
  14. ESOMEPRAZOLE [Concomitant]
     Route: 048
  15. FERROUS SULFATE TAB [Concomitant]
     Dosage: 325 MG (65MG IRON)
     Route: 048
  16. DEXAMETHASONE [Concomitant]
     Route: 048
  17. MULTIVITAMIN [Concomitant]
     Route: 048
  18. TIMOLOL [Concomitant]
     Route: 047
  19. INSULIN LISPRO, HUMAN [Concomitant]
     Dosage: 100 UNIT/ML
     Route: 058
  20. ERGOCALCIFEROL [Concomitant]
     Dosage: 400 UNIT
     Route: 048
  21. MULTI-VITAMIN [Concomitant]
     Route: 048

REACTIONS (1)
  - DIARRHOEA [None]
